FAERS Safety Report 14355385 (Version 1)
Quarter: 2018Q1

REPORT INFORMATION
  Report Type: Spontaneous
  Country: US (occurrence: US)
  Receive Date: 20180105
  Receipt Date: 20180105
  Transmission Date: 20180509
  Serious: No
  Sender: FDA-Public Use
  Company Number: US-TEVA-2017-US-842058

PATIENT
  Sex: Female
  Weight: 79 kg

DRUGS (2)
  1. FLORADIX [Concomitant]
     Active Substance: IRON
  2. PARAGARD T 380A [Suspect]
     Active Substance: COPPER
     Indication: CONTRACEPTION
     Dates: start: 201703

REACTIONS (11)
  - Fungal infection [Recovered/Resolved]
  - Fatigue [Not Recovered/Not Resolved]
  - Vaginal haemorrhage [Unknown]
  - Menorrhagia [Not Recovered/Not Resolved]
  - Allergy to metals [Unknown]
  - Bacterial vaginosis [Not Recovered/Not Resolved]
  - Anaemia [Not Recovered/Not Resolved]
  - Polymenorrhoea [Not Recovered/Not Resolved]
  - Vaginal discharge [Recovered/Resolved]
  - Vulvovaginal pruritus [Recovered/Resolved]
  - Vulvovaginal discomfort [Recovered/Resolved]
